FAERS Safety Report 12607466 (Version 2)
Quarter: 2017Q3

REPORT INFORMATION
  Report Type: Spontaneous
  Country: FR (occurrence: FR)
  Receive Date: 20160729
  Receipt Date: 20170718
  Transmission Date: 20171127
  Serious: Yes (Other)
  Sender: FDA-Public Use
  Company Number: FR-SA-2016SA134001

PATIENT
  Age: 69 Year
  Sex: Female

DRUGS (8)
  1. PARACETAMOL [Concomitant]
     Active Substance: ACETAMINOPHEN
  2. METOJECT [Concomitant]
     Active Substance: METHOTREXATE SODIUM
  3. RIFINAH [Suspect]
     Active Substance: ISONIAZID\RIFAMPIN
     Indication: ANTIBIOTIC PROPHYLAXIS
     Route: 048
     Dates: start: 20160226, end: 201606
  4. SPECIAFOLDINE [Concomitant]
     Active Substance: FOLIC ACID
  5. METHOTREXATE. [Suspect]
     Active Substance: METHOTREXATE
     Dosage: 1.4286 MG
     Route: 048
     Dates: start: 20160226
  6. ORENCIA [Suspect]
     Active Substance: ABATACEPT
     Indication: RHEUMATOID ARTHRITIS
     Dosage: 1 DF,1 IN 1 WEEK
     Route: 058
     Dates: start: 20160226
  7. VITAMIN D [Concomitant]
     Active Substance: CHOLECALCIFEROL
  8. ORENCIA [Suspect]
     Active Substance: ABATACEPT
     Indication: RHEUMATOID ARTHRITIS
     Dosage: 1 DF,1 IN 1 WEEK
     Route: 058

REACTIONS (1)
  - Retinal vein occlusion [Recovered/Resolved]

NARRATIVE: CASE EVENT DATE: 20160318
